FAERS Safety Report 4911991-4 (Version None)
Quarter: 2006Q1

REPORT INFORMATION
  Report Type: 
  Country: None (occurrence: None)
  Receive Date: 20060213
  Receipt Date: 20060207
  Transmission Date: 20060701
  Serious: Yes (Hospitalization)
  Sender: FDA-Public Use
  Company Number: 2006006152

PATIENT
  Age: 59 Year
  Sex: Female

DRUGS (4)
  1. FLUCONAZOLE [Suspect]
     Indication: ILL-DEFINED DISORDER
     Dosage: 50 MG (1 IN 1 D), ORAL
     Route: 048
     Dates: start: 20051107, end: 20051129
  2. DILTIAZEM [Suspect]
     Indication: PULMONARY HYPERTENSION
     Dosage: 240 MG (120 MG, 1 IN 1 D), ORAL
     Route: 048
     Dates: start: 20051107, end: 20051129
  3. FUROSEMIDE [Suspect]
     Indication: ILL-DEFINED DISORDER
     Dosage: ORAL
     Route: 048
     Dates: start: 19970115, end: 20051129
  4. MUCOMYST [Suspect]
     Indication: ILL-DEFINED DISORDER
     Dosage: ORAL
     Route: 048
     Dates: end: 20051129

REACTIONS (2)
  - DERMATITIS EXFOLIATIVE [None]
  - ERYTHEMA MULTIFORME [None]
